FAERS Safety Report 25485650 (Version 1)
Quarter: 2025Q2

REPORT INFORMATION
  Report Type: Spontaneous
  Country: CN (occurrence: CN)
  Receive Date: 20250626
  Receipt Date: 20250626
  Transmission Date: 20250716
  Serious: Yes (Hospitalization)
  Sender: ASTELLAS
  Company Number: CN-ASTELLAS-2025-AER-033916

PATIENT
  Age: 59 Year
  Sex: Male
  Weight: 71 kg

DRUGS (6)
  1. PROGRAF [Suspect]
     Active Substance: TACROLIMUS
     Indication: Prophylaxis against transplant rejection
     Dosage: TUBE FEEDING
     Route: 050
     Dates: start: 20250423, end: 20250424
  2. PROGRAF [Suspect]
     Active Substance: TACROLIMUS
     Dosage: TUBE FEEDING
     Route: 050
     Dates: start: 20250425, end: 20250426
  3. PROGRAF [Suspect]
     Active Substance: TACROLIMUS
     Dosage: TUBE FEEDING
     Route: 050
     Dates: start: 20250426, end: 20250507
  4. PROGRAF [Suspect]
     Active Substance: TACROLIMUS
     Dosage: TUBE FEEDING
     Route: 050
     Dates: start: 20250508, end: 20250509
  5. PROGRAF [Suspect]
     Active Substance: TACROLIMUS
     Dosage: TUBE FEEDING
     Route: 050
     Dates: start: 20250509, end: 20250513
  6. PROGRAF [Suspect]
     Active Substance: TACROLIMUS
     Route: 050
     Dates: start: 202505

REACTIONS (1)
  - Leukodystrophy [Recovering/Resolving]

NARRATIVE: CASE EVENT DATE: 20250513
